FAERS Safety Report 9547666 (Version 1)
Quarter: 2013Q3

REPORT INFORMATION
  Report Type: Spontaneous
  Country: US (occurrence: None)
  Receive Date: 20130923
  Receipt Date: 20130923
  Transmission Date: 20140515
  Serious: Yes (Disabling)
  Sender: FDA-Public Use
  Company Number: None

PATIENT
  Age: 76 Year
  Sex: Female
  Weight: 59.88 kg

DRUGS (1)
  1. LEVOFLOXACIN [Suspect]
     Indication: BRONCHOSCOPY
     Route: 048
     Dates: start: 20120224, end: 20120305

REACTIONS (5)
  - Musculoskeletal pain [None]
  - Pain in extremity [None]
  - Neck pain [None]
  - Abasia [None]
  - Muscular weakness [None]
